FAERS Safety Report 8834279 (Version 1)
Quarter: 2012Q4

REPORT INFORMATION
  Report Type: 
  Country: US (occurrence: US)
  Receive Date: 20121010
  Receipt Date: 20121010
  Transmission Date: 20130627
  Serious: Yes (Other)
  Sender: FDA-Public Use
  Company Number: US-TEVA-363556USA

PATIENT
  Age: 62 Year
  Sex: Male
  Weight: 72.64 kg

DRUGS (4)
  1. PROAIR HFA [Suspect]
     Indication: HYPERSENSITIVITY
     Dosage: at least 10 puffs were day
  2. METOPROLOL [Concomitant]
     Indication: HYPERTENSION
  3. HYDROCODONE [Concomitant]
     Indication: PAIN
  4. ASPIRIN [Concomitant]
     Dosage: 81 Milligram Daily;
     Route: 048

REACTIONS (1)
  - Blood pressure increased [Not Recovered/Not Resolved]
